FAERS Safety Report 20175874 (Version 2)
Quarter: 2021Q4

REPORT INFORMATION
  Report Type: Spontaneous
  Country: FR (occurrence: FR)
  Receive Date: 20211213
  Receipt Date: 20211220
  Transmission Date: 20220303
  Serious: Yes (Hospitalization)
  Sender: FDA-Public Use
  Company Number: None

PATIENT

DRUGS (11)
  1. SUBOXONE [Suspect]
     Active Substance: BUPRENORPHINE HYDROCHLORIDE\NALOXONE HYDROCHLORIDE
     Indication: Product used for unknown indication
     Dosage: UNSPECIFIED
     Route: 042
  2. SUBUTEX [Suspect]
     Active Substance: BUPRENORPHINE HYDROCHLORIDE
     Indication: Product used for unknown indication
     Dosage: UNK
     Route: 065
     Dates: start: 2007
  3. KETAMINE [Suspect]
     Active Substance: KETAMINE
     Indication: Product used for unknown indication
     Dosage: UNK
     Route: 065
  4. ALCOHOL [Suspect]
     Active Substance: ALCOHOL
     Indication: Alcohol use
     Dosage: 24 U / DAY
     Route: 048
     Dates: start: 1999
  5. OXAZEPAM [Suspect]
     Active Substance: OXAZEPAM
     Indication: Product used for unknown indication
     Dosage: 300 MILLIGRAM, QD
     Route: 065
     Dates: start: 202008
  6. LYSERGIDE [Suspect]
     Active Substance: LYSERGIDE
     Indication: Drug abuse
     Dosage: UNK
     Route: 065
  7. VALIUM [Suspect]
     Active Substance: DIAZEPAM
     Indication: Product used for unknown indication
     Dosage: 20 MILLIGRAM, QD
     Route: 065
  8. VALIUM [Suspect]
     Active Substance: DIAZEPAM
     Dosage: 15 MILLIGRAM, QD
     Route: 065
  9. TOBACCO LEAF [Suspect]
     Active Substance: TOBACCO LEAF
     Indication: Tobacco user
     Dosage: 20 CIG ROLLS /DAY
     Route: 055
     Dates: start: 1999
  10. METHADONE [Suspect]
     Active Substance: METHADONE HYDROCHLORIDE
     Indication: Product used for unknown indication
     Dosage: 100 MILLIGRAM, 2 TIMES/WK
     Route: 042
  11. BUPRENORPHINE HYDROCHLORIDE [Suspect]
     Active Substance: BUPRENORPHINE HYDROCHLORIDE
     Indication: Product used for unknown indication
     Dosage: 12 MILLIGRAM
     Route: 042
     Dates: start: 202002

REACTIONS (2)
  - Off label use [Not Recovered/Not Resolved]
  - Drug abuse [Not Recovered/Not Resolved]
